FAERS Safety Report 24778301 (Version 1)
Quarter: 2024Q4

REPORT INFORMATION
  Report Type: Spontaneous
  Country: US (occurrence: None)
  Receive Date: 20241225
  Receipt Date: 20241225
  Transmission Date: 20250115
  Serious: No
  Sender: Public
  Company Number: None

PATIENT
  Age: 7 Year
  Sex: Male
  Weight: 18.72 kg

DRUGS (1)
  1. TAMIFLU [Suspect]
     Active Substance: OSELTAMIVIR PHOSPHATE
     Indication: Influenza A virus test positive
     Dosage: ?60 DROPS TWICE A DAY ORAL
     Route: 048

REACTIONS (3)
  - Mood swings [None]
  - Emotional disorder [None]
  - Abnormal behaviour [None]

NARRATIVE: CASE EVENT DATE: 20241225
